FAERS Safety Report 9458590 (Version 1)
Quarter: 2013Q3

REPORT INFORMATION
  Report Type: Spontaneous
  Country: US (occurrence: US)
  Receive Date: 20130814
  Receipt Date: 20130814
  Transmission Date: 20140515
  Serious: Yes (Other)
  Sender: FDA-Public Use
  Company Number: PHEH2013US016904

PATIENT
  Sex: Male

DRUGS (1)
  1. STARLIX [Suspect]
     Route: 048

REACTIONS (2)
  - Atrial fibrillation [Recovering/Resolving]
  - Bronchitis [Unknown]
